FAERS Safety Report 6903865-4 (Version None)
Quarter: 2010Q3

REPORT INFORMATION
  Report Type: 
  Country: None (occurrence: None)
  Receive Date: 20100804
  Receipt Date: 20090121
  Transmission Date: 20110219
  Serious: Yes (Other)
  Sender: FDA-Public Use
  Company Number: US-PFIZER INC-2008085371

PATIENT
  Sex: Female

DRUGS (8)
  1. LYRICA [Interacting]
     Indication: PAIN
     Dates: start: 20061101
  2. NEURONTIN [Suspect]
     Dates: end: 20000101
  3. ALL OTHER THERAPEUTIC PRODUCTS [Interacting]
  4. ALL OTHER THERAPUETIC PRODUCT [Suspect]
  5. TRAMADOL HYDROCHLORIDE [Concomitant]
  6. BACLOFEN [Concomitant]
  7. PROTONIX [Concomitant]
  8. MAXALT [Concomitant]

REACTIONS (6)
  - ALOPECIA [None]
  - DRUG INTERACTION [None]
  - FATIGUE [None]
  - FEELING ABNORMAL [None]
  - PRESYNCOPE [None]
  - WEIGHT INCREASED [None]
